FAERS Safety Report 6917166-1 (Version None)
Quarter: 2010Q3

REPORT INFORMATION
  Report Type: 
  Country: None (occurrence: None)
  Receive Date: 20100810
  Receipt Date: 20100805
  Transmission Date: 20110219
  Serious: Yes (Other)
  Sender: FDA-Public Use
  Company Number: US-SANOFI-AVENTIS-2010SA046655

PATIENT
  Age: 50 Year
  Sex: Male

DRUGS (1)
  1. GLIMEPIRIDE [Suspect]

REACTIONS (2)
  - GLOMERULONEPHRITIS [None]
  - TUBULOINTERSTITIAL NEPHRITIS [None]
